FAERS Safety Report 24904333 (Version 1)
Quarter: 2025Q1

REPORT INFORMATION
  Report Type: Spontaneous
  Country: DE (occurrence: DE)
  Receive Date: 20250130
  Receipt Date: 20250130
  Transmission Date: 20250409
  Serious: Yes (Life-Threatening, Hospitalization)
  Sender: MYLAN
  Company Number: DE-MYLANLABS-2025M1005532

PATIENT
  Age: 57 Year
  Sex: Female

DRUGS (5)
  1. ACETAMINOPHEN [Suspect]
     Active Substance: ACETAMINOPHEN
     Indication: Cytokine release syndrome
     Route: 042
  2. PREDNISOLONE [Suspect]
     Active Substance: PREDNISOLONE
     Indication: Cytokine release syndrome
     Dosage: 100 MILLIGRAM, QD
     Route: 042
  3. PREDNISOLONE [Suspect]
     Active Substance: PREDNISOLONE
     Route: 042
  4. TOCILIZUMAB [Suspect]
     Active Substance: TOCILIZUMAB
     Indication: Cytokine release syndrome
     Route: 042
  5. MEROPENEM [Concomitant]
     Active Substance: MEROPENEM
     Indication: Sepsis
     Route: 065

REACTIONS (2)
  - Drug ineffective [Unknown]
  - Off label use [Unknown]
